FAERS Safety Report 9223106 (Version 1)
Quarter: 2013Q2

REPORT INFORMATION
  Report Type: Spontaneous
  Country: US (occurrence: None)
  Receive Date: 20130409
  Receipt Date: 20130409
  Transmission Date: 20140414
  Serious: Yes (Other)
  Sender: FDA-Public Use
  Company Number: None

PATIENT
  Age: 64 Year
  Sex: Female
  Weight: 55.34 kg

DRUGS (2)
  1. CYMBALTA [Suspect]
     Indication: DEPRESSION
  2. CYMBALTA [Suspect]
     Indication: PAIN

REACTIONS (9)
  - Night sweats [None]
  - Nightmare [None]
  - Insomnia [None]
  - Muscle rigidity [None]
  - Nervousness [None]
  - Tremor [None]
  - Paraesthesia [None]
  - Malaise [None]
  - Tinnitus [None]
